FAERS Safety Report 20116656 (Version 3)
Quarter: 2022Q4

REPORT INFORMATION
  Report Type: Spontaneous
  Country: US (occurrence: US)
  Receive Date: 20211126
  Receipt Date: 20221117
  Transmission Date: 20230113
  Serious: No
  Sender: FDA-Public Use
  Company Number: US-PURDUE PHARMA-USA-2021-0260516

PATIENT
  Age: 57 Year
  Sex: Male
  Weight: 83.91 kg

DRUGS (4)
  1. MORPHINE SULFATE [Suspect]
     Active Substance: MORPHINE SULFATE
     Indication: Pain
     Dosage: 30 MG, TID
     Route: 048
     Dates: start: 2010
  2. MS CONTIN [Suspect]
     Active Substance: MORPHINE SULFATE
     Indication: Analgesic therapy
     Dosage: 60 MILLIGRAM, QID
     Route: 048
     Dates: start: 2009
  3. MS CONTIN [Suspect]
     Active Substance: MORPHINE SULFATE
     Indication: Back pain
  4. NORCO [Concomitant]
     Active Substance: ACETAMINOPHEN\HYDROCODONE BITARTRATE
     Indication: Pain
     Dosage: UNK
     Route: 065

REACTIONS (5)
  - Inadequate analgesia [Unknown]
  - Product label issue [Unknown]
  - Product size issue [Unknown]
  - Fatigue [Unknown]
  - Product packaging issue [Unknown]

NARRATIVE: CASE EVENT DATE: 20210501
